FAERS Safety Report 7622520 (Version 2)
Quarter: 2013Q3

REPORT INFORMATION
  Report Type: Spontaneous
  Country: US (occurrence: US)
  Receive Date: 20101008
  Receipt Date: 20130730
  Transmission Date: 20140515
  Serious: Yes (Hospitalization)
  Sender: FDA-Public Use
  Company Number: US-ABBOTT-10P-163-0674601-00

PATIENT
  Sex: Female
  Weight: 81.72 kg

DRUGS (4)
  1. HUMIRA [Suspect]
     Indication: CROHN^S DISEASE
     Dates: start: 200911, end: 201009
  2. HUMIRA [Suspect]
     Dates: end: 201101
  3. HUMIRA [Suspect]
     Dates: start: 201101
  4. VITAMINS [Concomitant]
     Indication: VITAMIN SUPPLEMENTATION

REACTIONS (5)
  - Amniorrhoea [Unknown]
  - Premature rupture of membranes [Unknown]
  - Vaginal haemorrhage [Recovered/Resolved]
  - Fungal infection [Recovered/Resolved]
  - Crohn^s disease [Recovering/Resolving]
